FAERS Safety Report 25494389 (Version 2)
Quarter: 2025Q3

REPORT INFORMATION
  Report Type: Spontaneous
  Country: EU (occurrence: EU)
  Receive Date: 20250630
  Receipt Date: 20250924
  Transmission Date: 20251020
  Serious: Yes (Other)
  Sender: REGENERON
  Company Number: EU-BAYER-2025A083412

PATIENT
  Age: 76 Year
  Sex: Female

DRUGS (4)
  1. EYLEA [Suspect]
     Active Substance: AFLIBERCEPT
     Indication: Neovascular age-related macular degeneration
     Dosage: 2 MG, LEFT EYE, 40 MG/ML
     Route: 031
     Dates: start: 202212
  2. EYLEA [Suspect]
     Active Substance: AFLIBERCEPT
     Dosage: 2 MG, LEFT EYE, TOTAL OF 16 INJECTIONS, 40 MG/ML
     Route: 031
     Dates: start: 202401
  3. EYLEA HD [Suspect]
     Active Substance: AFLIBERCEPT
     Indication: Neovascular age-related macular degeneration
     Dosage: 8 MG, LEFT EYE, 114.3 MG/ML
     Dates: start: 202411
  4. EYLEA HD [Suspect]
     Active Substance: AFLIBERCEPT
     Dosage: 8 MG, LEFT EYE, 114.3 MG/ML
     Dates: start: 202505

REACTIONS (5)
  - Subretinal fluid [Recovered/Resolved]
  - Detachment of retinal pigment epithelium [Recovered/Resolved]
  - Treatment noncompliance [Recovered/Resolved]
  - Inappropriate schedule of product administration [Unknown]
  - Drug ineffective [Unknown]

NARRATIVE: CASE EVENT DATE: 20221201
